FAERS Safety Report 4381702-2 (Version None)
Quarter: 2004Q2

REPORT INFORMATION
  Report Type: 
  Country: None (occurrence: None)
  Receive Date: 20040614
  Receipt Date: 20031125
  Transmission Date: 20050107
  Serious: Yes (Disabling, Other)
  Sender: FDA-Public Use
  Company Number: 2003187352US

PATIENT
  Sex: Male

DRUGS (1)
  1. ZYVOX [Suspect]

REACTIONS (1)
  - NEUROPATHY [None]
